FAERS Safety Report 4415847-5 (Version None)
Quarter: 2004Q3

REPORT INFORMATION
  Report Type: 
  Country: None (occurrence: None)
  Receive Date: 20040730
  Receipt Date: 20040712
  Transmission Date: 20050211
  Serious: Yes (Life-Threatening, Hospitalization)
  Sender: FDA-Public Use
  Company Number: 200412329GDS

PATIENT
  Age: 80 Year
  Sex: Male

DRUGS (1)
  1. ADIRO 300 (ACETYLSALICYLIC ACID) [Suspect]
     Indication: CEREBROVASCULAR DISORDER
     Dosage: 300 MG, QD, ORAL
     Route: 048
     Dates: start: 19990101, end: 20040426

REACTIONS (4)
  - ANORECTAL DISORDER [None]
  - DIVERTICULUM INTESTINAL [None]
  - HAEMATOCRIT DECREASED [None]
  - HAEMORRHOIDS [None]
